FAERS Safety Report 5717502-8 (Version None)
Quarter: 2008Q2

REPORT INFORMATION
  Report Type: 
  Country: None (occurrence: None)
  Receive Date: 20080425
  Receipt Date: 20080421
  Transmission Date: 20081010
  Serious: Yes (Other)
  Sender: FDA-Public Use
  Company Number: DE-JNJFOC-20080205740

PATIENT
  Sex: Male
  Weight: 80 kg

DRUGS (1)
  1. HALDOL DECANOAT [Suspect]
     Indication: SCHIZOPHRENIA
     Route: 065

REACTIONS (1)
  - PULMONARY FIBROSIS [None]
